FAERS Safety Report 8136817-X (Version None)
Quarter: 2012Q1

REPORT INFORMATION
  Report Type: 
  Country: None (occurrence: None)
  Receive Date: 20120214
  Receipt Date: 20120203
  Transmission Date: 20120608
  Serious: Yes (Hospitalization)
  Sender: FDA-Public Use
  Company Number: TR-NOVOPROD-342353

PATIENT
  Age: 66 Year
  Sex: Female
  Weight: 55 kg

DRUGS (4)
  1. LIRAGLUTIDE FLEXPEN [Suspect]
     Dosage: 1.8 MG, QD
     Dates: start: 20120117
  2. LEVEMIR [Concomitant]
     Dosage: 10 UNK, UNK
  3. COUMADIN [Concomitant]
     Dosage: 5 MG, UNK
  4. LIRAGLUTIDE FLEXPEN [Suspect]
     Indication: TYPE 2 DIABETES MELLITUS
     Dosage: 1.8 MG, QD
     Dates: start: 20111117, end: 20111229

REACTIONS (1)
  - ACUTE CORONARY SYNDROME [None]
